FAERS Safety Report 10447723 (Version 5)
Quarter: 2015Q1

REPORT INFORMATION
  Report Type: Spontaneous
  Country: JP (occurrence: JP)
  Receive Date: 20140911
  Receipt Date: 20150303
  Transmission Date: 20150720
  Serious: Yes (Hospitalization, Other)
  Sender: FDA-Public Use
  Company Number: PHHY2014JP116792

PATIENT
  Age: 3 Year
  Sex: Male

DRUGS (5)
  1. CICLOSPORIN [Suspect]
     Active Substance: CYCLOSPORINE
     Indication: NEPHROTIC SYNDROME
     Dosage: 3 MG/KG, QD
     Route: 048
     Dates: start: 20131111
  2. CICLOSPORIN [Suspect]
     Active Substance: CYCLOSPORINE
     Dosage: 3 MG/KG, QD
     Route: 048
  3. CICLOSPORIN [Suspect]
     Active Substance: CYCLOSPORINE
     Dosage: 5 MG/KG, UNK
     Route: 048
     Dates: end: 20140119
  4. METHYLPREDNISOLONE. [Suspect]
     Active Substance: METHYLPREDNISOLONE
     Indication: NEPHROTIC SYNDROME
     Route: 065
  5. PREDNISOLONE. [Suspect]
     Active Substance: PREDNISOLONE
     Indication: NEPHROTIC SYNDROME
     Route: 065

REACTIONS (9)
  - Nephropathy toxic [Recovering/Resolving]
  - Oedema [Recovering/Resolving]
  - Immunosuppressant drug level increased [Unknown]
  - Drug ineffective [Unknown]
  - Anuria [Unknown]
  - Device related infection [Unknown]
  - Acute kidney injury [Unknown]
  - Blood creatinine increased [Unknown]
  - Pneumococcal sepsis [Unknown]

NARRATIVE: CASE EVENT DATE: 20131125
